FAERS Safety Report 3910603 (Version 2)
Quarter: 2016Q1

REPORT INFORMATION
  Report Type: Report from Study
  Country: US (occurrence: US)
  Receive Date: 20030305
  Receipt Date: 20160119
  Transmission Date: 20160526
  Serious: Yes (Other)
  Sender: FDA-Public Use
  Company Number: US-BRISTOL-MYERS SQUIBB COMPANY-12198339

PATIENT
  Age: 30 Year
  Sex: Female

DRUGS (6)
  1. EXTERNAL-LOPINAVIR [Suspect]
     Active Substance: LOPINAVIR
     Indication: HIV INFECTION
     Dosage: 3 DF, BID
     Route: 048
     Dates: start: 20010131
  2. EXTERNAL-RITONAVIR [Suspect]
     Active Substance: RITONAVIR
     Indication: HIV INFECTION
     Dosage: 3 DF, BID
     Route: 048
     Dates: start: 20010131
  3. EXTERNAL-EMTRICITABINE [Suspect]
     Active Substance: EMTRICITABINE
     Indication: HIV INFECTION
     Dosage: 200 MG, QD
     Route: 048
     Dates: start: 20010131, end: 20030110
  4. STAVUDINE. [Suspect]
     Active Substance: STAVUDINE
     Indication: HIV INFECTION
     Dosage: 40 MG, QD
     Route: 048
     Dates: start: 20010131, end: 20030110
  5. CELEBREX [Concomitant]
     Active Substance: CELECOXIB
     Indication: PRODUCT USED FOR UNKNOWN INDICATION
     Dosage: UNK UNK, PRN
     Route: 065
  6. COMBIVIR [Concomitant]
     Active Substance: LAMIVUDINE\ZIDOVUDINE
     Indication: PRODUCT USED FOR UNKNOWN INDICATION
     Dosage: UNK
     Route: 065
     Dates: start: 20030110

REACTIONS (4)
  - Pregnancy [Recovered/Resolved]
  - Uterine dilation and curettage [Recovered/Resolved]
  - Foetal death [Unknown]
  - Exposure during pregnancy [None]

NARRATIVE: CASE EVENT DATE: 20030129
